FAERS Safety Report 9651949 (Version 2)
Quarter: 2013Q4

REPORT INFORMATION
  Report Type: Spontaneous
  Country: GB (occurrence: GB)
  Receive Date: 20131029
  Receipt Date: 20131204
  Transmission Date: 20140711
  Serious: Yes (Other)
  Sender: FDA-Public Use
  Company Number: PHHY2013GB117698

PATIENT
  Age: 72 Year
  Sex: Female

DRUGS (3)
  1. RIFAMPICIN [Suspect]
     Indication: BILIARY CIRRHOSIS PRIMARY
     Route: 048
     Dates: end: 20131005
  2. RIFAMPICIN [Suspect]
     Indication: OFF LABEL USE
  3. WARFARIN [Concomitant]
     Indication: CARDIAC VALVE DISEASE

REACTIONS (4)
  - Aggression [Unknown]
  - Off label use [Unknown]
  - Psychotic disorder [Unknown]
  - Dyspnoea [Unknown]
